FAERS Safety Report 6199665-6 (Version None)
Quarter: 2009Q2

REPORT INFORMATION
  Report Type: 
  Country: None (occurrence: None)
  Receive Date: 20090522
  Receipt Date: 20071112
  Transmission Date: 20091009
  Serious: Yes (Hospitalization)
  Sender: FDA-Public Use
  Company Number: GB-ALEXION-A200700092

PATIENT
  Sex: Female

DRUGS (4)
  1. SOLIRIS [Suspect]
     Indication: PAROXYSMAL NOCTURNAL HAEMOGLOBINURIA
     Dosage: 600 MG, SINGLE
     Route: 042
     Dates: start: 20071001, end: 20071001
  2. SOLIRIS [Suspect]
     Dosage: 600 MG, SINGLE
     Route: 042
     Dates: start: 20071008, end: 20071008
  3. SOLIRIS [Suspect]
     Dosage: 600 MG, SINGLE
     Route: 042
     Dates: start: 20071015, end: 20071015
  4. WARFARIN SODIUM [Concomitant]
     Indication: PROPHYLAXIS
     Dosage: 13 MG, UNK
     Route: 048
     Dates: start: 20000101

REACTIONS (2)
  - BONE MARROW FAILURE [None]
  - NEUTROPENIA [None]
